FAERS Safety Report 7646328-3 (Version None)
Quarter: 2011Q3

REPORT INFORMATION
  Report Type: 
  Country: None (occurrence: None)
  Receive Date: 20110801
  Receipt Date: 20110720
  Transmission Date: 20111222
  Serious: Yes (Life-Threatening, Hospitalization)
  Sender: FDA-Public Use
  Company Number: CA-JNJFOC-20110603156

PATIENT
  Sex: Female
  Weight: 96 kg

DRUGS (2)
  1. USTEKINUMAB [Suspect]
     Route: 058
     Dates: start: 20101221
  2. USTEKINUMAB [Suspect]
     Indication: PUSTULAR PSORIASIS
     Route: 058
     Dates: start: 20110512

REACTIONS (3)
  - PNEUMONIA [None]
  - FOOT FRACTURE [None]
  - HYPOXIA [None]
